FAERS Safety Report 19050825 (Version 1)
Quarter: 2021Q1

REPORT INFORMATION
  Report Type: Spontaneous
  Country: US (occurrence: US)
  Receive Date: 20210324
  Receipt Date: 20210324
  Transmission Date: 20210420
  Serious: No
  Sender: FDA-Public Use
  Company Number: None

PATIENT
  Age: 27 Year
  Sex: Female
  Weight: 50.4 kg

DRUGS (1)
  1. INTENSE HYDRATION ULTRA REPAIR CREAM [Suspect]
     Active Substance: ALLANTOIN\OATMEAL
     Indication: DRY SKIN
     Dates: start: 20210319, end: 20210320

REACTIONS (3)
  - Application site exfoliation [None]
  - Application site pain [None]
  - Pain of skin [None]

NARRATIVE: CASE EVENT DATE: 20210320
